FAERS Safety Report 8918846 (Version 1)
Quarter: 2012Q4

REPORT INFORMATION
  Report Type: 
  Country: US (occurrence: None)
  Receive Date: 20121115
  Receipt Date: 20121115
  Transmission Date: 20130627
  Serious: No
  Sender: FDA-Public Use
  Company Number: None

PATIENT
  Sex: Male
  Weight: 69.4 kg

DRUGS (1)
  1. PACLITAXEL (TAXOL) [Suspect]

REACTIONS (8)
  - Nausea [None]
  - Flushing [None]
  - Retching [None]
  - Hyperhidrosis [None]
  - Pain [None]
  - Hypotension [None]
  - Drug hypersensitivity [None]
  - Unresponsive to stimuli [None]
